FAERS Safety Report 5477818-X (Version None)
Quarter: 2007Q4

REPORT INFORMATION
  Report Type: 
  Country: None (occurrence: None)
  Receive Date: 20071004
  Receipt Date: 20070927
  Transmission Date: 20080405
  Serious: Yes (Hospitalization)
  Sender: FDA-Public Use
  Company Number: CA-BAXTER-2007BH007779

PATIENT
  Age: 20 Year
  Sex: Male
  Weight: 58 kg

DRUGS (40)
  1. IVEEGAM [Suspect]
     Indication: IMMUNODEFICIENCY COMMON VARIABLE
     Route: 042
     Dates: start: 20040626, end: 20040626
  2. IVEEGAM [Suspect]
     Indication: HYPOGAMMAGLOBULINAEMIA
     Route: 042
     Dates: start: 20040626, end: 20040626
  3. IVEEGAM [Suspect]
     Indication: SELECTIVE IGA IMMUNODEFICIENCY
     Route: 042
     Dates: start: 20040626, end: 20040626
  4. IVEEGAM [Suspect]
     Indication: BLOOD IMMUNOGLOBULIN M DECREASED
     Route: 042
     Dates: start: 20040626, end: 20040626
  5. IVEEGAM [Suspect]
     Indication: IMMUNODEFICIENCY
     Route: 042
     Dates: start: 20040626, end: 20040626
  6. IVEEGAM [Suspect]
     Route: 042
     Dates: start: 20050401, end: 20050401
  7. IVEEGAM [Suspect]
     Route: 042
     Dates: start: 20050401, end: 20050401
  8. IVEEGAM [Suspect]
     Route: 042
     Dates: start: 20050401, end: 20050401
  9. IVEEGAM [Suspect]
     Route: 042
     Dates: start: 20050401, end: 20050401
  10. IVEEGAM [Suspect]
     Route: 042
     Dates: start: 20050401, end: 20050401
  11. IVEEGAM [Suspect]
     Route: 042
     Dates: start: 20070921, end: 20070921
  12. IVEEGAM [Suspect]
     Route: 042
     Dates: start: 20070921, end: 20070921
  13. IVEEGAM [Suspect]
     Route: 042
     Dates: start: 20070921, end: 20070921
  14. IVEEGAM [Suspect]
     Route: 042
     Dates: start: 20070921, end: 20070921
  15. IVEEGAM [Suspect]
     Route: 042
     Dates: start: 20070921, end: 20070921
  16. IVEEGAM [Suspect]
     Route: 042
     Dates: start: 20060526, end: 20060526
  17. IVEEGAM [Suspect]
     Route: 042
     Dates: start: 20060526, end: 20060526
  18. IVEEGAM [Suspect]
     Route: 042
     Dates: start: 20060526, end: 20060526
  19. IVEEGAM [Suspect]
     Route: 042
     Dates: start: 20060526, end: 20060526
  20. IVEEGAM [Suspect]
     Route: 042
     Dates: start: 20060526, end: 20060526
  21. IVEEGAM [Suspect]
     Route: 042
     Dates: start: 20060804, end: 20060804
  22. IVEEGAM [Suspect]
     Route: 042
     Dates: start: 20060804, end: 20060804
  23. IVEEGAM [Suspect]
     Route: 042
     Dates: start: 20060804, end: 20060804
  24. IVEEGAM [Suspect]
     Route: 042
     Dates: start: 20060804, end: 20060804
  25. IVEEGAM [Suspect]
     Route: 042
     Dates: start: 20060804, end: 20060804
  26. IVEEGAM [Suspect]
     Route: 042
     Dates: start: 20070511, end: 20070511
  27. IVEEGAM [Suspect]
     Route: 042
     Dates: start: 20070511, end: 20070511
  28. IVEEGAM [Suspect]
     Route: 042
     Dates: start: 20070511, end: 20070511
  29. IVEEGAM [Suspect]
     Route: 042
     Dates: start: 20070511, end: 20070511
  30. IVEEGAM [Suspect]
     Route: 042
     Dates: start: 20070511, end: 20070511
  31. IVEEGAM [Suspect]
     Route: 042
     Dates: start: 20070907, end: 20070907
  32. IVEEGAM [Suspect]
     Route: 042
     Dates: start: 20070907, end: 20070907
  33. IVEEGAM [Suspect]
     Route: 042
     Dates: start: 20070907, end: 20070907
  34. IVEEGAM [Suspect]
     Route: 042
     Dates: start: 20070907, end: 20070907
  35. IVEEGAM [Suspect]
     Route: 042
     Dates: start: 20070907, end: 20070907
  36. SOLU-CORTEF [Concomitant]
     Indication: DRUG USE FOR UNKNOWN INDICATION
     Route: 042
     Dates: start: 20070907, end: 20070907
  37. TYLENOL (CAPLET) [Concomitant]
     Indication: DRUG USE FOR UNKNOWN INDICATION
     Route: 048
     Dates: start: 20070907
  38. BENADRYL [Concomitant]
     Indication: DRUG USE FOR UNKNOWN INDICATION
     Route: 042
     Dates: start: 20070907, end: 20070907
  39. ZANTAC [Concomitant]
     Indication: DRUG USE FOR UNKNOWN INDICATION
     Route: 048
     Dates: start: 20070907
  40. PENTASA [Concomitant]
     Indication: COLITIS ULCERATIVE
     Route: 048

REACTIONS (3)
  - CHEST DISCOMFORT [None]
  - DIZZINESS [None]
  - DYSPNOEA [None]
